FAERS Safety Report 4461330-0 (Version None)
Quarter: 2004Q3

REPORT INFORMATION
  Report Type: 
  Country: None (occurrence: None)
  Receive Date: 20040928
  Receipt Date: 20040917
  Transmission Date: 20050211
  Serious: Yes (Other)
  Sender: FDA-Public Use
  Company Number: US-JNJFOC-20040906386

PATIENT
  Age: 44 Year
  Sex: Female
  Weight: 53.07 kg

DRUGS (3)
  1. ORTHO EVRA [Suspect]
     Indication: ENDOMETRIOSIS
     Route: 062
  2. PAIN MEDICATION [Concomitant]
  3. MUSCLE RELAXERS [Concomitant]

REACTIONS (2)
  - INTENTIONAL MISUSE [None]
  - METRORRHAGIA [None]
